FAERS Safety Report 12657164 (Version 1)
Quarter: 2016Q3

REPORT INFORMATION
  Report Type: Spontaneous
  Country: FR (occurrence: FR)
  Receive Date: 20160816
  Receipt Date: 20160816
  Transmission Date: 20161109
  Serious: Yes (Hospitalization, Other)
  Sender: FDA-Public Use
  Company Number: FR-ASTRAZENECA-2016SE87089

PATIENT
  Age: 47 Year
  Sex: Female

DRUGS (9)
  1. RIVOTRIL [Suspect]
     Active Substance: CLONAZEPAM
     Dosage: 1.0DF ONCE/SINGLE ADMINISTRATION
     Route: 042
     Dates: start: 20160324, end: 20160324
  2. XEROQUEL [Suspect]
     Active Substance: QUETIAPINE FUMARATE
     Dosage: 1.0DF ONCE/SINGLE ADMINISTRATION
     Route: 048
     Dates: start: 20160325, end: 20160325
  3. VALIUM [Suspect]
     Active Substance: DIAZEPAM
     Route: 048
     Dates: start: 201603, end: 20160408
  4. LOXAPAC [Suspect]
     Active Substance: LOXAPINE SUCCINATE
     Dosage: 2.0DF ONCE/SINGLE ADMINISTRATION
     Route: 042
     Dates: start: 20160324, end: 20160324
  5. SERESTA [Suspect]
     Active Substance: OXAZEPAM
     Route: 048
  6. SEROPLEX [Suspect]
     Active Substance: ESCITALOPRAM OXALATE
     Route: 048
     Dates: end: 201603
  7. AOTAL [Suspect]
     Active Substance: ACAMPROSATE CALCIUM
     Route: 048
  8. XEROQUEL [Suspect]
     Active Substance: QUETIAPINE FUMARATE
     Dosage: ONCE/SINGLE ADMINISTRATION
     Route: 048
     Dates: start: 20160408
  9. LEPTICUR [Suspect]
     Active Substance: TROPATEPINE HYDROCHLORIDE
     Route: 048
     Dates: start: 201603, end: 20160325

REACTIONS (2)
  - Bipolar disorder [Unknown]
  - Thrombocytopenia [Unknown]

NARRATIVE: CASE EVENT DATE: 2016
